FAERS Safety Report 6641926-8 (Version None)
Quarter: 2010Q1

REPORT INFORMATION
  Report Type: 
  Country: None (occurrence: None)
  Receive Date: 20100319
  Receipt Date: 20100308
  Transmission Date: 20100710
  Serious: Yes (Other)
  Sender: FDA-Public Use
  Company Number: PHHY2010GB01810

PATIENT
  Sex: Female

DRUGS (3)
  1. CLOZARIL [Suspect]
     Indication: SCHIZOPHRENIA
     Dosage: 450 MG, QD
     Dates: start: 20090206
  2. CLOZARIL [Suspect]
     Dosage: 300 MG, QD
  3. OMEPRAZOLE [Concomitant]

REACTIONS (8)
  - ANTIPSYCHOTIC DRUG LEVEL ABOVE THERAPEUTIC [None]
  - BLOOD CREATININE INCREASED [None]
  - GLOMERULAR FILTRATION RATE DECREASED [None]
  - HYPERTENSION [None]
  - NEPHROLITHIASIS [None]
  - OBESITY [None]
  - RENAL ATROPHY [None]
  - RENAL IMPAIRMENT [None]
